FAERS Safety Report 18557472 (Version 3)
Quarter: 2021Q1

REPORT INFORMATION
  Report Type: Report from Study
  Country: CA (occurrence: CA)
  Receive Date: 20201130
  Receipt Date: 20210208
  Transmission Date: 20210419
  Serious: Yes (Other)
  Sender: FDA-Public Use
  Company Number: CA-JNJFOC-20201136073

PATIENT
  Age: 84 Year
  Sex: Female

DRUGS (2)
  1. STELARA [Suspect]
     Active Substance: USTEKINUMAB
     Dosage: LAST DOSE ADMINISTERED ON 04?SEP?2020
     Route: 058
     Dates: start: 20200806
  2. STELARA [Suspect]
     Active Substance: USTEKINUMAB
     Indication: PSORIASIS
     Route: 058
     Dates: start: 20200709, end: 20200904

REACTIONS (3)
  - Wound infection [Recovering/Resolving]
  - Psoriasis [Not Recovered/Not Resolved]
  - Knee arthroplasty [Recovering/Resolving]

NARRATIVE: CASE EVENT DATE: 2020
